FAERS Safety Report 9736128 (Version 1)
Quarter: 2013Q4

REPORT INFORMATION
  Report Type: Report from Study
  Country: CA (occurrence: CA)
  Receive Date: 20131206
  Receipt Date: 20131206
  Transmission Date: 20140711
  Serious: Yes (Other)
  Sender: FDA-Public Use
  Company Number: CA-ALEXION PHARMACEUTICALS INC.-A201303954

PATIENT
  Age: 37 Year
  Sex: Female

DRUGS (5)
  1. SOLIRIS [Suspect]
     Indication: PAROXYSMAL NOCTURNAL HAEMOGLOBINURIA
     Dosage: 600 MG, QW
     Route: 042
     Dates: start: 20120907, end: 20120928
  2. SOLIRIS [Suspect]
     Dosage: UNK UNK, Q2W
     Route: 042
     Dates: start: 20121005
  3. PENICILLIN [Concomitant]
     Indication: PROPHYLAXIS
     Dosage: 500 MG, BID
     Route: 048
     Dates: start: 201208
  4. FOLIC ACID [Concomitant]
     Indication: SUPPLEMENTATION THERAPY
     Dosage: 1 MG, QD
     Route: 048
     Dates: start: 201208
  5. VICODIN [Concomitant]
     Indication: ANALGESIC THERAPY
     Dosage: 1-2 TABLETS, AS NEEDED
     Dates: start: 201208

REACTIONS (1)
  - Device issue [Recovered/Resolved]
